FAERS Safety Report 16766551 (Version 5)
Quarter: 2020Q1

REPORT INFORMATION
  Report Type: Spontaneous
  Country: US (occurrence: US)
  Receive Date: 20190903
  Receipt Date: 20200115
  Transmission Date: 20200409
  Serious: No
  Sender: FDA-Public Use
  Company Number: US-PFIZER INC-2019250251

PATIENT
  Age: 57 Year
  Sex: Female
  Weight: 74.84 kg

DRUGS (5)
  1. LYRICA [Suspect]
     Active Substance: PREGABALIN
     Indication: SCIATICA
     Dosage: 150 MG, 2X/DAY
     Route: 048
     Dates: start: 2017
  2. LYRICA [Suspect]
     Active Substance: PREGABALIN
     Indication: PARAESTHESIA
  3. LYRICA [Suspect]
     Active Substance: PREGABALIN
     Indication: NEURALGIA
  4. LYRICA [Suspect]
     Active Substance: PREGABALIN
     Indication: PAIN
     Dosage: 100 MG, 2X/DAY
     Route: 048
  5. LYRICA [Suspect]
     Active Substance: PREGABALIN
     Indication: NERVE COMPRESSION

REACTIONS (3)
  - Diarrhoea [Unknown]
  - Fall [Unknown]
  - Gait disturbance [Unknown]
